FAERS Safety Report 22011637 (Version 2)
Quarter: 2023Q1

REPORT INFORMATION
  Report Type: Spontaneous
  Country: GB (occurrence: GB)
  Receive Date: 20230220
  Receipt Date: 20230323
  Transmission Date: 20230418
  Serious: Yes (Hospitalization)
  Sender: FDA-Public Use
  Company Number: GB-Accord-300249

PATIENT
  Age: 84 Year
  Sex: Male

DRUGS (1)
  1. PIRFENIDONE [Suspect]
     Active Substance: PIRFENIDONE
     Indication: Product used for unknown indication
     Dosage: FREQUENCY 1 TDS
     Route: 048
     Dates: start: 202208

REACTIONS (4)
  - Lower respiratory tract infection [Unknown]
  - Cardiac disorder [Unknown]
  - COVID-19 [Unknown]
  - Weight decreased [Unknown]
